FAERS Safety Report 18596348 (Version 1)
Quarter: 2020Q4

REPORT INFORMATION
  Report Type: Spontaneous
  Country: IT (occurrence: IT)
  Receive Date: 20201209
  Receipt Date: 20201209
  Transmission Date: 20210114
  Serious: Yes (Other)
  Sender: FDA-Public Use
  Company Number: IT-INDIVIOR EUROPE LIMITED-INDV-127498-2020

PATIENT
  Age: 18 Year
  Sex: Male

DRUGS (6)
  1. SUBUTEX [Suspect]
     Active Substance: BUPRENORPHINE HYDROCHLORIDE
     Indication: DRUG ABUSE
     Dosage: 4 MILLIGRAM, UNKNOWN
     Route: 060
     Dates: start: 20190309, end: 20190309
  2. RIVOTRIL [Suspect]
     Active Substance: CLONAZEPAM
     Indication: DEPRESSION
     Dosage: 4 DOSAGE FORM, UNKNOWN
     Route: 048
     Dates: start: 20190309, end: 20190309
  3. DEPAKIN [Concomitant]
     Active Substance: VALPROATE SODIUM
     Indication: DEPRESSION
     Dosage: 1 DOSAGE FORM, UNKNOWN
     Route: 048
  4. ALCOHOL. [Suspect]
     Active Substance: ALCOHOL
     Indication: PRODUCT USED FOR UNKNOWN INDICATION
     Dosage: UNK
     Route: 048
     Dates: start: 20190309
  5. SERTRALINE [Concomitant]
     Active Substance: SERTRALINE HYDROCHLORIDE
     Indication: DEPRESSION
     Dosage: 50 MILLIGRAM, UNKNOWN
     Route: 048
  6. TRITTICO [Concomitant]
     Active Substance: TRAZODONE HYDROCHLORIDE
     Indication: DEPRESSION
     Dosage: 75 MILLIGRAM, UNKNOWN
     Route: 048

REACTIONS (6)
  - Bradyphrenia [Recovering/Resolving]
  - Wrong technique in product usage process [Recovered/Resolved]
  - Sopor [Recovering/Resolving]
  - Sedation [Recovering/Resolving]
  - Drug abuse [Recovering/Resolving]
  - Hypokinesia [Recovering/Resolving]

NARRATIVE: CASE EVENT DATE: 20190309
